FAERS Safety Report 12117410 (Version 1)
Quarter: 2016Q1

REPORT INFORMATION
  Report Type: Spontaneous
  Country: US (occurrence: US)
  Receive Date: 20160225
  Receipt Date: 20160225
  Transmission Date: 20160526
  Serious: No
  Sender: FDA-Public Use
  Company Number: US-ACTELION PHARMACEUTICALS US, INC.-A-US2016-132008

PATIENT
  Age: 71 Year
  Sex: Female

DRUGS (14)
  1. STROVITE PLUS [Concomitant]
  2. CEFADROXIL. [Concomitant]
     Active Substance: CEFADROXIL
  3. TEMAZEPAM. [Concomitant]
     Active Substance: TEMAZEPAM
  4. LIPITOR [Concomitant]
     Active Substance: ATORVASTATIN CALCIUM
  5. CLOBETASOL [Concomitant]
     Active Substance: CLOBETASOL
  6. VALCHLOR [Suspect]
     Active Substance: MECHLORETHAMINE
     Indication: MYCOSIS FUNGOIDES
     Dosage: UNK, QD
     Route: 061
     Dates: start: 201601
  7. DICLOFENAC [Concomitant]
     Active Substance: DICLOFENAC
  8. XANAX [Concomitant]
     Active Substance: ALPRAZOLAM
  9. METOPROLOL. [Concomitant]
     Active Substance: METOPROLOL
  10. SYNTHROID [Concomitant]
     Active Substance: LEVOTHYROXINE SODIUM
  11. ESZOPICLONE. [Concomitant]
     Active Substance: ESZOPICLONE
  12. OMEGA 3 [Concomitant]
     Active Substance: OMEGA-3 FATTY ACIDS
  13. RAMIPRIL. [Concomitant]
     Active Substance: RAMIPRIL
  14. CYMBALTA [Concomitant]
     Active Substance: DULOXETINE HYDROCHLORIDE

REACTIONS (2)
  - Application site erythema [Unknown]
  - Application site dryness [Unknown]
